FAERS Safety Report 16130386 (Version 2)
Quarter: 2019Q3

REPORT INFORMATION
  Report Type: Spontaneous
  Country: FR (occurrence: FR)
  Receive Date: 20190328
  Receipt Date: 20190722
  Transmission Date: 20191004
  Serious: Yes (Other)
  Sender: FDA-Public Use
  Company Number: PHHY2019FR065783

PATIENT
  Age: 8 Year
  Sex: Female
  Weight: 32.2 kg

DRUGS (2)
  1. ILARIS [Suspect]
     Active Substance: CANAKINUMAB
     Indication: STILL^S DISEASE
     Dosage: 100 MG, QMO
     Route: 058
     Dates: start: 20180816
  2. SOLUPRED [Concomitant]
     Indication: STILL^S DISEASE
     Dosage: 0.5 MG/KG, QD
     Route: 048

REACTIONS (3)
  - Hepatocellular injury [Recovered/Resolved]
  - Hepatocellular injury [Recovering/Resolving]
  - Skin mass [Not Recovered/Not Resolved]

NARRATIVE: CASE EVENT DATE: 20181031
